FAERS Safety Report 7103106-1 (Version None)
Quarter: 2010Q4

REPORT INFORMATION
  Report Type: 
  Country: None (occurrence: None)
  Receive Date: 20101115
  Receipt Date: 20080512
  Transmission Date: 20110411
  Serious: No
  Sender: FDA-Public Use
  Company Number: US-KINGPHARMUSA00001-K200800544

PATIENT
  Age: 42 Year
  Sex: Male

DRUGS (11)
  1. AVINZA [Suspect]
     Indication: PAIN
     Dosage: 60 MG, QD
     Route: 048
     Dates: start: 20080423, end: 20080501
  2. AVINZA [Suspect]
     Indication: BACK PAIN
  3. CLONIDINE [Concomitant]
  4. ZOLOFT [Concomitant]
  5. XANAX [Concomitant]
  6. ALUPENT   /00000202/ [Concomitant]
     Indication: ASTHMA
  7. TESTOSTERONE [Concomitant]
  8. ADVAIR DISKUS 100/50 [Concomitant]
     Indication: ASTHMA
  9. PROVENTIL /00139501/ [Concomitant]
     Indication: ASTHMA
  10. SINGULAIR [Concomitant]
     Indication: ASTHMA
     Dosage: UNK, UNK
  11. PREDNISONE [Concomitant]

REACTIONS (2)
  - ABDOMINAL PAIN [None]
  - DIARRHOEA [None]
